FAERS Safety Report 16155669 (Version 2)
Quarter: 2019Q2

REPORT INFORMATION
  Report Type: Spontaneous
  Country: FR (occurrence: FR)
  Receive Date: 20190404
  Receipt Date: 20190523
  Transmission Date: 20190711
  Serious: Yes (Death)
  Sender: FDA-Public Use
  Company Number: FR-ROCHE-2289778

PATIENT
  Age: 82 Year
  Sex: Female
  Weight: 76.3 kg

DRUGS (8)
  1. RISPERIDONE. [Suspect]
     Active Substance: RISPERIDONE
     Indication: PRODUCT USED FOR UNKNOWN INDICATION
     Dosage: ON 11/FEB/2019, RECEIVED MOST RECENT DOSE
     Route: 048
  2. TAHOR [Suspect]
     Active Substance: ATORVASTATIN CALCIUM
     Indication: DYSLIPIDAEMIA
     Dosage: ON 11/FEB/2019, RECEIVED MOST RECENT DOSE
     Route: 048
     Dates: start: 20181206
  3. INDAPAMIDE. [Suspect]
     Active Substance: INDAPAMIDE
     Indication: HYPERTENSION
     Dosage: ON 11/FEB/2019, RECEIVED MOST RECENT DOSE
     Route: 048
     Dates: start: 201901
  4. CANDESARTAN CILEXETIL. [Suspect]
     Active Substance: CANDESARTAN CILEXETIL
     Indication: HYPERTENSION
     Dosage: ON 11/FEB/2019, RECEIVED MOST RECENT DOSE
     Route: 048
     Dates: start: 20181206
  5. TAMIFLU [Suspect]
     Active Substance: OSELTAMIVIR PHOSPHATE
     Indication: ANTIVIRAL PROPHYLAXIS
     Dosage: ON  06/FEB/2019, SHE RECEIVED MOST RECENT DOSE OF OSELTAMIVIR PHOSPHATE.
     Route: 048
     Dates: start: 20190129
  6. XARELTO [Suspect]
     Active Substance: RIVAROXABAN
     Indication: ATRIAL FIBRILLATION
     Dosage: ON 11/FEB/2019, RECEIVED MOST RECENT DOSE
     Route: 048
     Dates: start: 20181206
  7. SERESTA [Suspect]
     Active Substance: OXAZEPAM
     Indication: PRODUCT USED FOR UNKNOWN INDICATION
     Route: 048
     Dates: start: 20190201, end: 20190211
  8. PAROXETINE. [Suspect]
     Active Substance: PAROXETINE
     Indication: PRODUCT USED FOR UNKNOWN INDICATION
     Dosage: ON 11/FEB/2019, RECEIVED MOST RECENT DOSE
     Route: 065
     Dates: start: 20181206

REACTIONS (2)
  - Hepatitis [Fatal]
  - Acute kidney injury [Fatal]

NARRATIVE: CASE EVENT DATE: 20190209
